FAERS Safety Report 18598971 (Version 1)
Quarter: 2020Q4

REPORT INFORMATION
  Report Type: Spontaneous
  Country: GB (occurrence: GB)
  Receive Date: 20201210
  Receipt Date: 20201210
  Transmission Date: 20210114
  Serious: Yes (Hospitalization, Other)
  Sender: FDA-Public Use
  Company Number: GB-ACCORD-210443

PATIENT
  Age: 10 Year
  Sex: Male
  Weight: 45.6 kg

DRUGS (10)
  1. CISPLATIN. [Concomitant]
     Active Substance: CISPLATIN
  2. PARACETAMOL [Concomitant]
     Active Substance: ACETAMINOPHEN
  3. OMEPRAZOLE. [Concomitant]
     Active Substance: OMEPRAZOLE
  4. FLUOROURACIL. [Suspect]
     Active Substance: FLUOROURACIL
     Indication: NASOPHARYNGEAL CANCER
     Route: 042
     Dates: start: 20201111, end: 20201116
  5. MANNITOL. [Concomitant]
     Active Substance: MANNITOL
  6. DEXAMETHASONE. [Suspect]
     Active Substance: DEXAMETHASONE
     Indication: PROPHYLAXIS OF NAUSEA AND VOMITING
     Dosage: 50% DOSE DUE TO INTERACTIN WITH APREPITANT
     Route: 042
     Dates: start: 20201110, end: 20201114
  7. ONDANSETRON [Concomitant]
     Active Substance: ONDANSETRON
  8. FOLINIC ACID [Concomitant]
     Active Substance: LEUCOVORIN
  9. APREPITANT. [Concomitant]
     Active Substance: APREPITANT
  10. SULFAMETHOXAZOLE/TRIMETHOPRIM [Concomitant]
     Active Substance: SULFAMETHOXAZOLE\TRIMETHOPRIM

REACTIONS (1)
  - Bradycardia [Recovered/Resolved]

NARRATIVE: CASE EVENT DATE: 20201113
